FAERS Safety Report 5315302-4 (Version None)
Quarter: 2007Q2

REPORT INFORMATION
  Report Type: 
  Country: None (occurrence: None)
  Receive Date: 20070502
  Receipt Date: 20070423
  Transmission Date: 20071010
  Serious: Yes (Other)
  Sender: FDA-Public Use
  Company Number: FI-PFIZER INC-2007032653

PATIENT
  Sex: Male

DRUGS (3)
  1. ACCUPRO [Suspect]
     Dates: start: 20030101, end: 20070101
  2. FUROSEMIDE [Concomitant]
     Indication: FLUID RETENTION
  3. WARFARIN SODIUM [Concomitant]

REACTIONS (2)
  - BLOOD PRESSURE INCREASED [None]
  - HYPERSENSITIVITY [None]
